FAERS Safety Report 20810104 (Version 1)
Quarter: 2022Q2

REPORT INFORMATION
  Report Type: Spontaneous
  Country: US (occurrence: US)
  Receive Date: 20220510
  Receipt Date: 20220510
  Transmission Date: 20220721
  Serious: No
  Sender: FDA-Public Use
  Company Number: US-OYSTER POINT PHARMA, INC.-2022OYS00152

PATIENT
  Sex: Female

DRUGS (21)
  1. TYRVAYA [Suspect]
     Active Substance: VARENICLINE TARTRATE
     Indication: Dry eye
     Dosage: 1 SQUIRT IN EACH NOSTRIL, 2X/DAY, 12 HOURS APART
     Route: 045
     Dates: start: 202201, end: 20220202
  2. TYRVAYA [Suspect]
     Active Substance: VARENICLINE TARTRATE
     Dosage: 1 SQUIRT IN EACH NOSTRIL , 1X/DAY
     Route: 045
     Dates: start: 20220203, end: 20220211
  3. RESTASIS [Suspect]
     Active Substance: CYCLOSPORINE
     Indication: Dry eye
     Dosage: 1 DROP, EACH EYE, 2X/DAY
     Route: 047
     Dates: end: 20220202
  4. RESTASIS [Suspect]
     Active Substance: CYCLOSPORINE
     Dosage: 1 DROP, EACH EYE, 1X/DAY
     Route: 047
     Dates: start: 20220203, end: 20220211
  5. RESTASIS [Suspect]
     Active Substance: CYCLOSPORINE
     Dosage: 1 DROP, EACH EYE, 2X/DAY
     Route: 047
     Dates: start: 20220211
  6. DICYCLOMINE [Concomitant]
     Active Substance: DICYCLOMINE HYDROCHLORIDE
     Dosage: 10 MG, 2X/DAY
  7. PANTOPRAZOLE [Concomitant]
     Active Substance: PANTOPRAZOLE
     Dosage: 40 MG, 2X/DAY
  8. LOSARTAN POTASSIUM, HCTZ [Concomitant]
     Dosage: 1 TABLETS, 1X/DAY
  9. LEVOXYL [Concomitant]
     Active Substance: LEVOTHYROXINE SODIUM
     Dosage: 50 ?G, 1X/DAY
  10. CRESTOR [Concomitant]
     Active Substance: ROSUVASTATIN CALCIUM
     Dosage: 5 MG, 1X/DAY
  11. REQUIP [Concomitant]
     Active Substance: ROPINIROLE HYDROCHLORIDE
     Dosage: 4 MG, 1X/DAY, IN THE EVENING
  12. SYSTANE EYEDROPS [Concomitant]
     Active Substance: POLYETHYLENE GLYCOL 400\PROPYLENE GLYCOL
     Dosage: UNK, AS NEEDED
  13. FLONASE [Concomitant]
     Active Substance: FLUTICASONE PROPIONATE
     Dosage: 50 ?G, AS NEEDED
  14. NEURONTIN [Concomitant]
     Active Substance: GABAPENTIN
     Dosage: 800 MG, 2X/DAY
  15. CELEBREX [Concomitant]
     Active Substance: CELECOXIB
     Dosage: 200 MG, 1X/DAY IN THE AM
  16. CELEBREX [Concomitant]
     Active Substance: CELECOXIB
     Dosage: 200 MG, 1X/DAY AS NEEDED IN THE PM
  17. PREMARIN [Concomitant]
     Active Substance: ESTROGENS, CONJUGATED
     Dosage: UNK, 2X/WEEK
  18. TYLENOL [Concomitant]
     Active Substance: ACETAMINOPHEN
     Dosage: 500 MG, AS NEEDED
  19. VITAMINS [Concomitant]
     Active Substance: VITAMINS
     Dosage: 1 TABLETS, 1X/DAY
  20. CALCIUM\VITAMIN D [Concomitant]
     Active Substance: CALCIUM\VITAMIN D
     Dosage: 1 DOSAGE UNITS, 1X/DAY
  21. FISH OIL DE3 (DRY EYE OMEGA 3) [Concomitant]
     Dosage: 3 TABLETS, 1X/DAY

REACTIONS (9)
  - Periorbital swelling [Recovered/Resolved]
  - Rash [Recovered/Resolved]
  - Headache [Recovering/Resolving]
  - Swelling face [Not Recovered/Not Resolved]
  - Temporomandibular joint syndrome [Unknown]
  - Inflammation [Not Recovered/Not Resolved]
  - Arthralgia [Recovering/Resolving]
  - Pain [Recovering/Resolving]
  - Lacrimation increased [Recovering/Resolving]

NARRATIVE: CASE EVENT DATE: 20220101
